FAERS Safety Report 24127331 (Version 2)
Quarter: 2024Q3

REPORT INFORMATION
  Report Type: Spontaneous
  Country: KR (occurrence: KR)
  Receive Date: 20240723
  Receipt Date: 20240923
  Transmission Date: 20241017
  Serious: Yes (Hospitalization)
  Sender: SAMSUNG BIOEPIS
  Company Number: KR-SAMSUNG BIOEPIS-SB-2024-21757

PATIENT
  Age: 78 Year
  Sex: Female
  Weight: 34 kg

DRUGS (46)
  1. TRASTUZUMAB [Suspect]
     Active Substance: TRASTUZUMAB
     Indication: Product used for unknown indication
     Route: 042
     Dates: start: 20240422, end: 20240708
  2. TRASTUZUMAB [Suspect]
     Active Substance: TRASTUZUMAB
     Route: 042
     Dates: start: 20240730
  3. NIVOLUMAB [Suspect]
     Active Substance: NIVOLUMAB
     Indication: Product used for unknown indication
     Route: 042
     Dates: start: 20240422, end: 20240708
  4. NIVOLUMAB [Suspect]
     Active Substance: NIVOLUMAB
     Route: 042
     Dates: start: 20240730
  5. GEMCITABINE [Suspect]
     Active Substance: GEMCITABINE
     Indication: Product used for unknown indication
     Dosage: EVERY 3 WEEK (DAY 1, DAY 8)
     Route: 042
     Dates: start: 20240422, end: 20240708
  6. GEMCITABINE [Suspect]
     Active Substance: GEMCITABINE
     Route: 042
     Dates: start: 20240730
  7. CISPLATIN [Suspect]
     Active Substance: CISPLATIN
     Indication: Product used for unknown indication
     Dosage: EVERY 3 WEEK (DAY 1, DAY 8)
     Route: 042
     Dates: start: 20240422, end: 20240708
  8. CISPLATIN [Suspect]
     Active Substance: CISPLATIN
     Route: 042
     Dates: start: 20240730
  9. UNI-C [Concomitant]
     Indication: Product used for unknown indication
     Dosage: PRN
     Dates: start: 20240321
  10. HERBALS [Concomitant]
     Active Substance: HERBALS
     Indication: Product used for unknown indication
     Dates: start: 20231024
  11. DONG-A GASTER [Concomitant]
     Indication: Product used for unknown indication
     Dates: start: 20240308
  12. NORZYME [Concomitant]
     Indication: Product used for unknown indication
     Dates: start: 20240308
  13. ACETAMINOPHEN\TRAMADOL [Concomitant]
     Active Substance: ACETAMINOPHEN\TRAMADOL
     Indication: Product used for unknown indication
     Dates: start: 20240308
  14. MAGO [Concomitant]
     Indication: Product used for unknown indication
     Dates: start: 20231027
  15. OFLOXACIN [Concomitant]
     Active Substance: OFLOXACIN
     Indication: Product used for unknown indication
     Dosage: OPHTHALMIC, PRN
     Dates: start: 20240313
  16. OLMESARTAN MEDOXOMIL [Concomitant]
     Active Substance: OLMESARTAN MEDOXOMIL
     Indication: Product used for unknown indication
     Dates: start: 20240315
  17. CARVEDILOL [Concomitant]
     Active Substance: CARVEDILOL
     Indication: Product used for unknown indication
     Dates: start: 20240318
  18. OXYCODONE HYDROCHLORIDE [Concomitant]
     Active Substance: OXYCODONE HYDROCHLORIDE
     Indication: Product used for unknown indication
     Dosage: PRN
     Dates: start: 20240321
  19. AKYNZEO [Concomitant]
     Indication: Product used for unknown indication
     Dosage: FREQUENCY OTHER
     Dates: start: 20240321
  20. YUHAN DEXAMETHASONE DISODIUM [Concomitant]
     Indication: Product used for unknown indication
     Dosage: PRN
     Dates: start: 20240315
  21. VITAMINS [Concomitant]
     Active Substance: VITAMINS
     Indication: Product used for unknown indication
     Dosage: PRN
     Dates: start: 20240321
  22. HUONS CHLORPHENIRAMINE MALEATE [Concomitant]
     Indication: Product used for unknown indication
     Dosage: PRN
     Dates: start: 20240422
  23. BANAN [Concomitant]
     Active Substance: CEFPODOXIME PROXETIL
     Indication: Product used for unknown indication
     Dates: start: 20240604
  24. HEXOMEDINE SOLUTION [Concomitant]
     Indication: Product used for unknown indication
     Dosage: 0.12%, 100 ML PRN;
     Dates: start: 20240604
  25. TRISON KIT [Concomitant]
     Indication: Product used for unknown indication
     Dosage: ONCE;
     Dates: start: 20240610
  26. METRONIDAZOLE [Concomitant]
     Active Substance: METRONIDAZOLE
     Indication: Product used for unknown indication
     Dosage: 100 ML BOTTLE; ONCE;
     Dates: start: 20240610
  27. SAMSUNG IBPROFEN PREMIX [Concomitant]
     Indication: Product used for unknown indication
     Dosage: ONCE;
     Dates: start: 20240610
  28. SAMSUNG IBPROFEN PREMIX [Concomitant]
     Dosage: ONCE;
     Dates: start: 20240626
  29. HUMULIN R [Concomitant]
     Active Substance: INSULIN HUMAN
     Indication: Product used for unknown indication
     Dates: start: 20240611
  30. DAI HAN CALCIUM GLUCONATE [Concomitant]
     Indication: Product used for unknown indication
     Dosage: 20 ML;
     Dates: start: 20240611
  31. KASUWELL SUSPENSION [Concomitant]
     Indication: Product used for unknown indication
     Dates: start: 20240611
  32. KALIMATE POWDER [Concomitant]
     Indication: Product used for unknown indication
     Dates: start: 20240611
  33. DULACKHAN [Concomitant]
     Indication: Product used for unknown indication
     Dosage: 15 ML;
     Dates: start: 20240617
  34. ENCOVER SOLUTION [Concomitant]
     Indication: Product used for unknown indication
     Dosage: 200 ML (COFFEE FLAVOR) PRN
     Dates: start: 20240626
  35. FLASINYL [Concomitant]
     Indication: Product used for unknown indication
     Dates: start: 20240626
  36. INNO.N LEVOFLOXACIN [Concomitant]
     Indication: Product used for unknown indication
     Dosage: 500 MG/ 100 ML (BAG); ONCE;
     Dates: start: 20240626
  37. SMOFLIPID [Concomitant]
     Active Substance: FISH OIL\MEDIUM-CHAIN TRIGLYCERIDES\OLIVE OIL\SOYBEAN OIL
     Indication: Product used for unknown indication
     Dosage: 20 % INJECTION 500 ML, PRN;
     Dates: start: 20240626
  38. Myungmoon Methocarbamol [Concomitant]
     Indication: Product used for unknown indication
     Dosage: 1 G/10 ML;
     Dates: start: 20240708
  39. ACETPHEN PREMIX [Concomitant]
     Indication: Product used for unknown indication
     Dosage: 100 ML;
     Dates: start: 20240708
  40. TRAMADOL HYDROCHLORIDE [Concomitant]
     Active Substance: TRAMADOL HYDROCHLORIDE
     Indication: Product used for unknown indication
     Dosage: 50 MG/ML; ONCE;
     Dates: start: 20240708
  41. DICAMAX [Concomitant]
     Indication: Product used for unknown indication
     Dosage: DICAMAX 1000 TABLET;
     Dates: start: 20240718
  42. TRAZODONE HYDROCHLORIDE [Concomitant]
     Active Substance: TRAZODONE HYDROCHLORIDE
     Indication: Product used for unknown indication
     Dates: start: 20240730
  43. NUCYNTA [Concomitant]
     Active Substance: TAPENTADOL HYDROCHLORIDE
     Indication: Product used for unknown indication
     Dosage: ER TABLET;
     Dates: start: 20240325
  44. CHOLINE ALFOSCERATE [Concomitant]
     Active Substance: CHOLINE ALFOSCERATE
     Indication: Product used for unknown indication
     Dates: start: 20240718
  45. Mytonin [Concomitant]
     Indication: Product used for unknown indication
     Dates: start: 20240718
  46. ULTRACET [Concomitant]
     Active Substance: ACETAMINOPHEN\TRAMADOL HYDROCHLORIDE
     Indication: Product used for unknown indication
     Dosage: ER TABLET;
     Dates: start: 20240813

REACTIONS (2)
  - Fall [Recovering/Resolving]
  - Lower limb fracture [Recovered/Resolved]

NARRATIVE: CASE EVENT DATE: 20240707
